FAERS Safety Report 8225580-X (Version None)
Quarter: 2012Q1

REPORT INFORMATION
  Report Type: 
  Country: None (occurrence: None)
  Receive Date: 20120321
  Receipt Date: 20120313
  Transmission Date: 20120608
  Serious: Yes (Congenital Anomaly, Other)
  Sender: FDA-Public Use
  Company Number: GXKR2012DE001156

PATIENT

DRUGS (3)
  1. FOLIC ACID [Concomitant]
     Dosage: MATERNAL DOSE: 5 [MG/D ]/ ALSO PRECONCEPTIONAL
     Route: 064
  2. LAMOTRIGINE [Suspect]
     Dosage: MATERNAL DOSE: 700 [MG/D (225-225-250) ]/ FOR TWO YEARS
     Route: 064
  3. VIMPAT [Suspect]
     Dosage: MATERNAL DOSE: 200 [MG/D (100-0-100) ]/ FOR ONE YEAR
     Route: 064

REACTIONS (5)
  - FOETAL EXPOSURE DURING PREGNANCY [None]
  - BRADYCARDIA NEONATAL [None]
  - ATRIAL SEPTAL DEFECT [None]
  - COARCTATION OF THE AORTA [None]
  - HYPERBILIRUBINAEMIA [None]
